FAERS Safety Report 8941281 (Version 1)
Quarter: 2012Q4

REPORT INFORMATION
  Report Type: 
  Country: CN (occurrence: CN)
  Receive Date: 20121203
  Receipt Date: 20121203
  Transmission Date: 20130627
  Serious: Yes (Other)
  Sender: FDA-Public Use
  Company Number: CN-ROCHE-1162381

PATIENT
  Age: 52 Year
  Sex: Female

DRUGS (3)
  1. INTERFERON ALFA-2A [Suspect]
     Indication: CHRONIC HEPATITIS C
     Route: 058
  2. INTERFERON ALFA-2A [Suspect]
     Route: 058
  3. RIBAVIRIN (NON-ROCHE/NON-COMPARATOR) [Concomitant]
     Indication: CHRONIC HEPATITIS C
     Route: 065

REACTIONS (2)
  - Deafness [Recovered/Resolved]
  - Hypoacusis [Recovered/Resolved]
